FAERS Safety Report 4409986-2 (Version None)
Quarter: 2004Q3

REPORT INFORMATION
  Report Type: 
  Country: None (occurrence: None)
  Receive Date: 20040728
  Receipt Date: 20040723
  Transmission Date: 20050211
  Serious: Yes (Hospitalization)
  Sender: FDA-Public Use
  Company Number: ES-ROCHE-375128

PATIENT
  Age: 74 Year
  Sex: Female
  Weight: 79 kg

DRUGS (7)
  1. IBANDRONIC ACID [Suspect]
     Indication: OSTEOPOROSIS POSTMENOPAUSAL
     Dosage: ROUTE, DOSE AND FREQUENCY BLINDED. 01 JUL 2004: ORAL DAILY DOSE INTERRUPTED; 23 JUL 2004: INTRAVENO+
     Route: 065
     Dates: start: 20021107, end: 20040723
  2. PARACETAMOL [Concomitant]
  3. DICLOFENACO [Concomitant]
  4. ESPIRONOLACTONA [Concomitant]
  5. RANITIDINA [Concomitant]
  6. TETRAZEPAM [Concomitant]
     Dates: start: 20031107
  7. CALCIUM + VITAMIN D [Concomitant]
     Dosage: DAILY DOSE: 500 MG/400 IU.
     Dates: start: 20030615

REACTIONS (1)
  - TEMPORAL ARTERITIS [None]
